FAERS Safety Report 19847145 (Version 1)
Quarter: 2021Q3

REPORT INFORMATION
  Report Type: Spontaneous
  Country: US (occurrence: US)
  Receive Date: 20210917
  Receipt Date: 20210917
  Transmission Date: 20211014
  Serious: Yes (Death, Hospitalization, Other)
  Sender: FDA-Public Use
  Company Number: US-AMGEN-USASP2021140832

PATIENT
  Age: 30 Year
  Sex: Female

DRUGS (5)
  1. FLUOROURACIL 5 FU [Concomitant]
     Active Substance: FLUOROURACIL
     Dosage: UNK
  2. BEVACIZUMAB. [Suspect]
     Active Substance: BEVACIZUMAB
     Indication: OFF LABEL USE
  3. LEUCOVORIN [FOLINIC ACID] [Concomitant]
     Active Substance: LEUCOVORIN
     Dosage: UNK
  4. BEVACIZUMAB. [Suspect]
     Active Substance: BEVACIZUMAB
     Indication: SPINAL CORD COMPRESSION
     Dosage: UNK
     Route: 065
     Dates: end: 202002
  5. OXALIPLATIN. [Concomitant]
     Active Substance: OXALIPLATIN
     Dosage: UNK

REACTIONS (4)
  - Meningitis bacterial [Recovering/Resolving]
  - Off label use [Unknown]
  - Oesophageal fistula [Recovering/Resolving]
  - Death [Fatal]

NARRATIVE: CASE EVENT DATE: 202003
